FAERS Safety Report 20509204 (Version 1)
Quarter: 2022Q1

REPORT INFORMATION
  Report Type: Spontaneous
  Country: CA (occurrence: CA)
  Receive Date: 20220223
  Receipt Date: 20220223
  Transmission Date: 20220423
  Serious: Yes (Life-Threatening, Hospitalization)
  Sender: FDA-Public Use
  Company Number: CA-BAXTER-2022BAX003567

PATIENT
  Age: 61 Year
  Sex: Female
  Weight: 48 kg

DRUGS (4)
  1. CYCLOPHOSPHAMIDE [Suspect]
     Active Substance: CYCLOPHOSPHAMIDE
     Indication: Amyloidosis
     Dosage: DOSAGE FORM: NOT SPECIFIED
     Route: 048
  2. DARATUMUMAB [Suspect]
     Active Substance: DARATUMUMAB
     Indication: Amyloidosis
     Dosage: DOSAGE FORM: SOLUTION INTRAVENOUS
     Route: 058
  3. DEXAMETHASONE [Suspect]
     Active Substance: DEXAMETHASONE
     Indication: Amyloidosis
     Dosage: DOSAGE FORM: NOT SPECIFIED
     Route: 042
  4. VELCADE [Suspect]
     Active Substance: BORTEZOMIB
     Indication: Amyloidosis
     Dosage: SINGLE USE VIAL; DOSAGE FORM: POWDER FOR SOLUTION INTRAVENOUS
     Route: 058

REACTIONS (3)
  - Off label use [Unknown]
  - Product use in unapproved indication [Unknown]
  - Sepsis [Unknown]
